FAERS Safety Report 15244698 (Version 1)
Quarter: 2018Q3

REPORT INFORMATION
  Report Type: Spontaneous
  Country: US (occurrence: US)
  Receive Date: 20180713
  Receipt Date: 20180713
  Transmission Date: 20181010
  Serious: Yes (Hospitalization)
  Sender: FDA-Public Use
  Company Number: None

PATIENT
  Age: 41 Year
  Sex: Male
  Weight: 78.75 kg

DRUGS (2)
  1. CIPROFLOXACIN. [Suspect]
     Active Substance: CIPROFLOXACIN
     Indication: CELLULITIS
     Route: 040
     Dates: start: 20180507, end: 20180712
  2. CIPROFLOXIN [Concomitant]
     Active Substance: CIPROFLOXACIN
     Dates: start: 20180301, end: 20180505

REACTIONS (7)
  - Urticaria [None]
  - Anxiety [None]
  - Pruritus [None]
  - Oedema peripheral [None]
  - Insomnia [None]
  - Tendonitis [None]
  - Condition aggravated [None]

NARRATIVE: CASE EVENT DATE: 20180508
